FAERS Safety Report 7320015-3 (Version None)
Quarter: 2011Q1

REPORT INFORMATION
  Report Type: 
  Country: None (occurrence: None)
  Receive Date: 20110228
  Receipt Date: 20110221
  Transmission Date: 20110831
  Serious: Yes (Hospitalization)
  Sender: FDA-Public Use
  Company Number: US-B.I. PHARMACEUTICALS,INC./RIDGEFIELD-2011-BP-01179BP

PATIENT
  Age: 82 Year
  Sex: Female
  Weight: 74.39 kg

DRUGS (7)
  1. METOPROLOL [Concomitant]
     Dosage: 100 MG
  2. GLIPIZIDE [Concomitant]
     Dosage: 10 MG
  3. CARDIZEM [Concomitant]
     Dosage: 180 MG
  4. LIPITOR [Concomitant]
  5. SYNTHROID [Concomitant]
  6. PRADAXA [Suspect]
     Indication: ATRIAL FIBRILLATION
     Dosage: 300 MG
     Dates: start: 20101214, end: 20110217
  7. METFORMIN [Concomitant]
     Dosage: 1000 MG

REACTIONS (3)
  - INGUINAL HERNIA, OBSTRUCTIVE [None]
  - GROIN PAIN [None]
  - URTICARIA [None]
